FAERS Safety Report 10911951 (Version 1)
Quarter: 2015Q1

REPORT INFORMATION
  Report Type: Report from Study
  Country: JP (occurrence: None)
  Receive Date: 20150309
  Receipt Date: 20150309
  Transmission Date: 20150721
  Serious: Yes (Other)
  Sender: FDA-Public Use
  Company Number: 2008JP005019

PATIENT
  Age: 35 Year
  Sex: Female

DRUGS (28)
  1. DERMOVATE (CLOBETASOL PROPIONATE) [Concomitant]
  2. DASEN 9SERRAPEPTASE) [Concomitant]
  3. ADOFEED (FLURBIPROFEN) [Concomitant]
  4. ASTHPHYLLIN (DIPROPHYLLINE_NOSCAPINE COMBINED DRUG) [Concomitant]
  5. CRAVIT (LEVOFLOXACIN HYDRATE) [Concomitant]
     Active Substance: LEVOFLOXACIN
  6. BREDININ (MIZORIBINE) [Concomitant]
     Active Substance: MIZORIBINE
  7. RIMATIL (BUCILLAMINE) [Concomitant]
  8. FOSAMAC (ALENDRONATE SODIUM HYDRATE) [Concomitant]
  9. PROGRAF [Suspect]
     Active Substance: TACROLIMUS\TACROLIMUS ANHYDROUS
     Indication: LUPUS NEPHRITIS
     Route: 048
     Dates: start: 20080110, end: 20090415
  10. GENINAX (GARENOXACIN MESILATE HYDRATE) [Concomitant]
  11. MUCOSOLVAN (AMBROXOL HYDROHCLORIDE) [Concomitant]
  12. PRIMPERAN [Concomitant]
     Active Substance: METOCLOPRAMIDE HYDROCHLORIDE
  13. LOCOID (HYDROCORTISOINE BUTYRATE) [Concomitant]
  14. TRANSAMIN (TRANEXAMIC ACID) [Concomitant]
  15. MUCODYNE (CARBOCISTEINE) [Concomitant]
     Active Substance: CARBOCYSTEINE
  16. PROCYLIN (BERAPROST SODIUM) [Concomitant]
  17. RINDERON-VG (BETAMETHASONE VALERATE_GENTAMICIN) [Concomitant]
  18. ANPLAG (SARPOGRELATE HYDROCHLORIDE) [Concomitant]
  19. JUVELA N (TOCOPHEROL NICOTINATE) [Concomitant]
  20. LACTEC (LACTATED RINGERS SOLUTION) [Concomitant]
  21. LAMISIL (TERBINAFINE HYDROCHLORIDE) [Concomitant]
  22. LOXONIN (LOXOPROFEN SODIUM) [Concomitant]
     Active Substance: LOXOPROFEN SODIUM
  23. VOLTAREN [Concomitant]
     Active Substance: DICLOFENAC SODIUM
  24. PREDONINE (PREDNISOLONE) [Concomitant]
  25. MIYA BM (CLOSTRIDIUM BUTYRICUM) [Concomitant]
  26. ALFAROL [Concomitant]
     Active Substance: ALFACALCIDOL
  27. PARIET (SODIUM RABEPRAZOLE) [Concomitant]
  28. LYRICA [Concomitant]
     Active Substance: PREGABALIN

REACTIONS (8)
  - Systemic lupus erythematosus rash [None]
  - Bronchitis [None]
  - Gastroenteritis [None]
  - Tinea cruris [None]
  - Pharyngitis [None]
  - Arthritis [None]
  - Alopecia areata [None]
  - Condition aggravated [None]

NARRATIVE: CASE EVENT DATE: 20080409
